FAERS Safety Report 23234440 (Version 1)
Quarter: 2023Q4

REPORT INFORMATION
  Report Type: Spontaneous
  Country: AU (occurrence: AU)
  Receive Date: 20231128
  Receipt Date: 20231128
  Transmission Date: 20240110
  Serious: Yes (Death)
  Sender: FDA-Public Use
  Company Number: AU-TASMAN PHARMA, INC.-2023TSM00192

PATIENT
  Sex: Male

DRUGS (1)
  1. CLOZAPINE [Suspect]
     Active Substance: CLOZAPINE
     Indication: Schizophrenia
     Dosage: 75 MG, 1X/DAY, NOCTE (AT NIGHT)
     Route: 048
     Dates: end: 20231008

REACTIONS (3)
  - Metabolic encephalopathy [Fatal]
  - Hypercalcaemia of malignancy [Fatal]
  - Lung cancer metastatic [Fatal]
